FAERS Safety Report 4443897-1 (Version None)
Quarter: 2004Q3

REPORT INFORMATION
  Report Type: 
  Country: None (occurrence: None)
  Receive Date: 20040902
  Receipt Date: 20040417
  Transmission Date: 20050211
  Serious: Yes (Other)
  Sender: FDA-Public Use
  Company Number: 2250051-2004-00296

PATIENT
  Sex: Female

DRUGS (2)
  1. RHOGAM [Suspect]
     Indication: PROPHYLAXIS
  2. RHOGAM [Suspect]
     Indication: RHESUS HAEMOLYTIC DISEASE OF NEWBORN

REACTIONS (2)
  - CONVULSION [None]
  - MEDICATION ERROR [None]
